FAERS Safety Report 5664924-X (Version None)
Quarter: 2008Q1

REPORT INFORMATION
  Report Type: 
  Country: None (occurrence: None)
  Receive Date: 20080314
  Receipt Date: 20080306
  Transmission Date: 20080703
  Serious: Yes (Hospitalization)
  Sender: FDA-Public Use
  Company Number: BE-ABBOTT-08P-013-0441315-00

PATIENT
  Sex: Male
  Weight: 100 kg

DRUGS (4)
  1. HUMIRA [Suspect]
     Indication: PSORIATIC ARTHROPATHY
  2. AUGMENTIN '125' [Suspect]
     Indication: CELLULITIS
     Route: 042
     Dates: start: 20080105, end: 20080105
  3. ZOPICLONE [Concomitant]
     Indication: DRUG USE FOR UNKNOWN INDICATION
  4. OMEPRAZOLE [Concomitant]
     Indication: DRUG USE FOR UNKNOWN INDICATION

REACTIONS (6)
  - ANIMAL SCRATCH [None]
  - CELLULITIS [None]
  - DERMATITIS EXFOLIATIVE [None]
  - DRUG HYPERSENSITIVITY [None]
  - SEPSIS PASTEURELLA [None]
  - SKIN EXFOLIATION [None]
